FAERS Safety Report 5578547-4 (Version None)
Quarter: 2007Q4

REPORT INFORMATION
  Report Type: 
  Country: None (occurrence: None)
  Receive Date: 20071227
  Receipt Date: 20071213
  Transmission Date: 20080405
  Serious: No
  Sender: FDA-Public Use
  Company Number: 2007JP005391

PATIENT
  Age: 84 Year
  Sex: Female
  Weight: 43 kg

DRUGS (5)
  1. VESICARE [Suspect]
     Indication: HYPERTONIC BLADDER
     Dosage: 5 MG, UID/QD, ORAL, 2.5 MGM UID/QD, ORAL
     Route: 048
     Dates: start: 20071002, end: 20071129
  2. VESICARE [Suspect]
     Indication: HYPERTONIC BLADDER
     Dosage: 5 MG, UID/QD, ORAL, 2.5 MGM UID/QD, ORAL
     Route: 048
     Dates: start: 20071130
  3. RISPERDAL [Suspect]
     Indication: DEMENTIA
     Dosage: 0.25 MG, UID/QD, ORAL
     Route: 048
     Dates: start: 20070601
  4. BAYASPIRIN TABLET [Concomitant]
  5. MAGNESIUM OXIDE (MAGNESIUM OXIDE) POWDER [Concomitant]

REACTIONS (3)
  - ACTIVITIES OF DAILY LIVING IMPAIRED [None]
  - CONDITION AGGRAVATED [None]
  - DEMENTIA [None]
